FAERS Safety Report 8370358-X (Version None)
Quarter: 2012Q2

REPORT INFORMATION
  Report Type: 
  Country: None (occurrence: None)
  Receive Date: 20120518
  Receipt Date: 20111207
  Transmission Date: 20120825
  Serious: No
  Sender: FDA-Public Use
  Company Number: US-ASTRAZENECA-2012SE01044

PATIENT
  Age: 68 Year
  Sex: Male

DRUGS (3)
  1. PROPRANOLOL [Concomitant]
     Dosage: UNKNOWN
  2. IBUPROFEN [Concomitant]
     Dosage: UNKNOWN
  3. PRILOSEC OTC [Suspect]
     Route: 048

REACTIONS (4)
  - INJURY [None]
  - SKIN HAEMORRHAGE [None]
  - LACERATION [None]
  - PRODUCT BLISTER PACKAGING ISSUE [None]
